FAERS Safety Report 7884352-6 (Version None)
Quarter: 2011Q4

REPORT INFORMATION
  Report Type: 
  Country: None (occurrence: None)
  Receive Date: 20111102
  Receipt Date: 20111027
  Transmission Date: 20120403
  Serious: Yes (Other)
  Sender: FDA-Public Use
  Company Number: JP-PFIZER INC-2011263329

PATIENT
  Age: 6 Year

DRUGS (1)
  1. ZITHROMAX [Suspect]
     Indication: PNEUMONIA MYCOPLASMAL
     Dosage: UNK

REACTIONS (1)
  - PNEUMONIA [None]
